FAERS Safety Report 9761632 (Version 1)
Quarter: 2013Q4

REPORT INFORMATION
  Report Type: Spontaneous
  Country: US (occurrence: US)
  Receive Date: 20131216
  Receipt Date: 20131216
  Transmission Date: 20140711
  Serious: Yes (Death, Hospitalization)
  Sender: FDA-Public Use
  Company Number: US-ACTELION-A-NJ2013-92176

PATIENT
  Age: 74 Year
  Sex: Male

DRUGS (4)
  1. TRACLEER [Suspect]
     Indication: PULMONARY ARTERIAL HYPERTENSION
     Dosage: UNK
     Route: 048
     Dates: end: 20131126
  2. ASPIRIN [Concomitant]
     Dosage: 325 MG, UNK
  3. LASIX [Concomitant]
     Dosage: 40 MG, UNK
  4. DIGOXIN [Concomitant]
     Dosage: 0.25 MG, UNK

REACTIONS (3)
  - Renal failure [Fatal]
  - Cardiac failure [Fatal]
  - Fluid retention [Fatal]
